FAERS Safety Report 23985055 (Version 1)
Quarter: 2024Q2

REPORT INFORMATION
  Report Type: Spontaneous
  Country: US (occurrence: US)
  Receive Date: 20240618
  Receipt Date: 20240618
  Transmission Date: 20240715
  Serious: Yes (Other)
  Sender: FDA-Public Use
  Company Number: US-AMGEN-USASP2024117233

PATIENT

DRUGS (1)
  1. PREDNISONE [Suspect]
     Active Substance: PREDNISONE
     Indication: Product used for unknown indication
     Dosage: UNK
     Route: 048

REACTIONS (8)
  - Acute kidney injury [Unknown]
  - Pneumonia [Unknown]
  - Pulmonary embolism [Unknown]
  - Knee arthroplasty [Unknown]
  - Post procedural complication [Unknown]
  - Post procedural infection [Unknown]
  - Wound dehiscence [Unknown]
  - Urinary tract infection [Unknown]
